FAERS Safety Report 13137214 (Version 1)
Quarter: 2017Q1

REPORT INFORMATION
  Report Type: Report from Study
  Country: US (occurrence: US)
  Receive Date: 20170123
  Receipt Date: 20170123
  Transmission Date: 20170428
  Serious: Yes (Other)
  Sender: FDA-Public Use
  Company Number: US-ROCHE-1881899

PATIENT
  Age: 76 Year
  Sex: Female
  Weight: 81.72 kg

DRUGS (3)
  1. IVIG [Concomitant]
     Active Substance: HUMAN IMMUNOGLOBULIN G
     Indication: IMMUNE THROMBOCYTOPENIC PURPURA
     Dosage: ONGOING; NO
     Route: 065
     Dates: start: 201408, end: 201606
  2. LUCENTIS [Suspect]
     Active Substance: RANIBIZUMAB
     Indication: OPEN GLOBE INJURY
     Dosage: ONGOING: YES
     Route: 050
     Dates: start: 201301
  3. NPLATE [Concomitant]
     Active Substance: ROMIPLOSTIM
     Indication: IMMUNE THROMBOCYTOPENIC PURPURA
     Dosage: ONGOING: NO
     Route: 065
     Dates: start: 2015, end: 201611

REACTIONS (4)
  - Eye pain [Unknown]
  - Rectal cancer [Unknown]
  - Immune thrombocytopenic purpura [Unknown]
  - Eye swelling [Unknown]

NARRATIVE: CASE EVENT DATE: 20140801
